FAERS Safety Report 17326622 (Version 2)
Quarter: 2020Q1

REPORT INFORMATION
  Report Type: Spontaneous
  Country: US (occurrence: US)
  Receive Date: 20200127
  Receipt Date: 20200317
  Transmission Date: 20200409
  Serious: No
  Sender: FDA-Public Use
  Company Number: US-009507513-2001USA008712

PATIENT
  Sex: Female

DRUGS (1)
  1. NUVARING [Suspect]
     Active Substance: ETHINYL ESTRADIOL\ETONOGESTREL
     Dosage: 1 RING, CHANGE EVERY 3 TO 4 WEEKS
     Route: 067

REACTIONS (3)
  - Product dose omission [Unknown]
  - Incorrect product administration duration [Unknown]
  - Product packaging issue [Unknown]

NARRATIVE: CASE EVENT DATE: 201911
